FAERS Safety Report 6410201-9 (Version None)
Quarter: 2009Q4

REPORT INFORMATION
  Report Type: 
  Country: None (occurrence: None)
  Receive Date: 20091022
  Receipt Date: 20091008
  Transmission Date: 20100525
  Serious: Yes (Other)
  Sender: FDA-Public Use
  Company Number: PHHY2009CL43810

PATIENT
  Age: 49 Year
  Sex: Female

DRUGS (1)
  1. TAREG D [Suspect]
     Indication: HYPERTENSION
     Dosage: 1 DF (160/12.5 MG)/ DAY
     Dates: start: 20080101

REACTIONS (1)
  - VASCULAR INJURY [None]
